FAERS Safety Report 24763419 (Version 2)
Quarter: 2025Q1

REPORT INFORMATION
  Report Type: Spontaneous
  Country: US (occurrence: US)
  Receive Date: 20241222
  Receipt Date: 20250109
  Transmission Date: 20250409
  Serious: No
  Sender: SANOFI AVENTIS
  Company Number: US-SA-2024SA377464

PATIENT
  Age: 20 Year
  Sex: Female

DRUGS (3)
  1. DUPIXENT [Suspect]
     Active Substance: DUPILUMAB
     Indication: Dermatitis atopic
     Dosage: 200 MG, QOW
     Route: 058
     Dates: start: 20241002
  2. AZELAIC ACID [Concomitant]
     Active Substance: AZELAIC ACID
  3. EUCRISA [Concomitant]
     Active Substance: CRISABOROLE

REACTIONS (3)
  - Sleep disorder due to a general medical condition [Unknown]
  - Dermatitis contact [Unknown]
  - Pruritus [Unknown]

NARRATIVE: CASE EVENT DATE: 20240101
